FAERS Safety Report 9154198 (Version 1)
Quarter: 2013Q1

REPORT INFORMATION
  Report Type: Spontaneous
  Country: US (occurrence: None)
  Receive Date: 20130307
  Receipt Date: 20130307
  Transmission Date: 20140127
  Serious: Yes (Death, Hospitalization)
  Sender: FDA-Public Use
  Company Number: 2013STP1000068

PATIENT
  Age: 63 Year
  Sex: Female

DRUGS (3)
  1. MATULANE [Suspect]
     Indication: BRAIN NEOPLASM MALIGNANT
     Route: 048
     Dates: start: 20120814
  2. CCNU [Suspect]
  3. VINCRISTINE SULFATE [Suspect]

REACTIONS (3)
  - Anaemia [None]
  - Mental status changes [None]
  - Refusal of treatment by patient [None]
